FAERS Safety Report 11791398 (Version 2)
Quarter: 2016Q1

REPORT INFORMATION
  Report Type: Spontaneous
  Country: IE (occurrence: IE)
  Receive Date: 20151201
  Receipt Date: 20160106
  Transmission Date: 20160525
  Serious: Yes (Hospitalization, Other)
  Sender: FDA-Public Use
  Company Number: IE-BAYER-2015-400004

PATIENT
  Age: 74 Year
  Sex: Male
  Weight: 61.2 kg

DRUGS (10)
  1. OXYNORM [Concomitant]
     Active Substance: OXYCODONE HYDROCHLORIDE
  2. TARGIN [Concomitant]
     Active Substance: NALOXONE HYDROCHLORIDE\OXYCODONE HYDROCHLORIDE
     Dosage: B.D
  3. SOLPADEINE [Concomitant]
  4. XOFIGO [Suspect]
     Active Substance: RADIUM RA-223 DICHLORIDE
     Indication: PROSTATE CANCER STAGE IV
     Dosage: EVERY 4 WEEKS FOR TOTAL OF 6 DOSES
     Route: 042
     Dates: start: 20150728, end: 20150728
  5. ZOMETA [Concomitant]
     Active Substance: ZOLEDRONIC ACID
     Dosage: UNK UNK, Q1MON
  6. ZOMETA [Concomitant]
     Active Substance: ZOLEDRONIC ACID
     Dosage: UNK
     Dates: start: 20150812, end: 20150812
  7. MOVICOL [MACROGOL 3350,POTASSIUM CHLORIDE,SODIUM BICARBONATE,SODIU [Concomitant]
     Indication: CONSTIPATION
  8. XOFIGO [Suspect]
     Active Substance: RADIUM RA-223 DICHLORIDE
     Indication: PROSTATE CANCER STAGE IV
     Dosage: 1 DF, Q1MON
     Route: 042
     Dates: start: 20150929, end: 20150929
  9. XOFIGO [Suspect]
     Active Substance: RADIUM RA-223 DICHLORIDE
     Indication: PROSTATE CANCER STAGE IV
     Dosage: UNK
     Route: 042
     Dates: start: 20151103, end: 20151103
  10. XOFIGO [Suspect]
     Active Substance: RADIUM RA-223 DICHLORIDE
     Indication: METASTASES TO BONE
     Dosage: UNK
     Route: 042
     Dates: start: 20150825, end: 20150825

REACTIONS (10)
  - General physical health deterioration [None]
  - Anal incontinence [Recovered/Resolved]
  - Vomiting [Recovered/Resolved]
  - Platelet count decreased [Not Recovered/Not Resolved]
  - Thrombocytopenia [None]
  - Platelet count decreased [None]
  - Arthralgia [Recovered/Resolved]
  - Platelet count decreased [None]
  - Confusional state [None]
  - Diarrhoea [Recovered/Resolved]

NARRATIVE: CASE EVENT DATE: 20150730
